FAERS Safety Report 4969745-9 (Version None)
Quarter: 2006Q2

REPORT INFORMATION
  Report Type: 
  Country: None (occurrence: None)
  Receive Date: 20060411
  Receipt Date: 20050408
  Transmission Date: 20061013
  Serious: Yes (Hospitalization, Disabling)
  Sender: FDA-Public Use
  Company Number: US-MERCK-0504USA01295

PATIENT
  Age: 45 Year
  Sex: Male
  Weight: 68 kg

DRUGS (2)
  1. VIOXX [Suspect]
     Indication: PAIN
     Route: 048
     Dates: start: 20000921, end: 20010101
  2. VIOXX [Suspect]
     Indication: ARTHRITIS
     Route: 048
     Dates: start: 20000921, end: 20010101

REACTIONS (15)
  - AMNESIA [None]
  - ANGINA UNSTABLE [None]
  - ANXIETY [None]
  - AORTIC VALVE INCOMPETENCE [None]
  - AORTIC VALVE STENOSIS [None]
  - ARTHRALGIA [None]
  - ARTHROPOD STING [None]
  - BUNDLE BRANCH BLOCK RIGHT [None]
  - CARDIOVASCULAR DISORDER [None]
  - CHEST PAIN [None]
  - CORONARY ARTERY DISEASE [None]
  - HEADACHE [None]
  - HYPERCHOLESTEROLAEMIA [None]
  - SHOULDER PAIN [None]
  - THROMBOSIS [None]
